FAERS Safety Report 20994503 (Version 2)
Quarter: 2022Q3

REPORT INFORMATION
  Report Type: Spontaneous
  Country: US (occurrence: US)
  Receive Date: 20220622
  Receipt Date: 20220708
  Transmission Date: 20221026
  Serious: Yes (Hospitalization, Other)
  Sender: FDA-Public Use
  Company Number: US-SA-SAC20220616002220

PATIENT
  Age: 67 Year
  Sex: Male

DRUGS (1)
  1. AUBAGIO [Suspect]
     Active Substance: TERIFLUNOMIDE
     Indication: Multiple sclerosis
     Dosage: 14 MG, QD
     Route: 048
     Dates: start: 20180724

REACTIONS (4)
  - Dysphagia [Unknown]
  - Choking [Unknown]
  - Aspiration [Unknown]
  - Pneumonia [Unknown]

NARRATIVE: CASE EVENT DATE: 20220526
